FAERS Safety Report 12432775 (Version 1)
Quarter: 2016Q2

REPORT INFORMATION
  Report Type: Spontaneous
  Country: US (occurrence: US)
  Receive Date: 20160603
  Receipt Date: 20160603
  Transmission Date: 20160815
  Serious: Yes (Other)
  Sender: FDA-Public Use
  Company Number: US-BRISTOL-MYERS SQUIBB COMPANY-BMS-2016-041869

PATIENT
  Age: 46 Year
  Sex: Male

DRUGS (1)
  1. YERVOY [Suspect]
     Active Substance: IPILIMUMAB
     Indication: MALIGNANT MELANOMA
     Dosage: 950 MG, Q3WK
     Route: 042
     Dates: start: 20160415

REACTIONS (3)
  - Muscle spasms [Unknown]
  - Prescribed overdose [Unknown]
  - Hypoxia [Unknown]

NARRATIVE: CASE EVENT DATE: 20160415
